FAERS Safety Report 5270725-7 (Version None)
Quarter: 2007Q1

REPORT INFORMATION
  Report Type: 
  Country: None (occurrence: None)
  Receive Date: 20070319
  Receipt Date: 20070319
  Transmission Date: 20070707
  Serious: Yes (Life-Threatening, Other)
  Sender: FDA-Public Use
  Company Number: None

PATIENT
  Age: 98 Year
  Sex: Male
  Weight: 66.2252 kg

DRUGS (2)
  1. AZITHROMYCIN [Suspect]
     Indication: RESPIRATORY DISORDER
     Dosage: 500 MG DAY ONE PO
     Route: 048
     Dates: start: 20070309, end: 20070310
  2. AZITHROMYCIN [Suspect]
     Dosage: 250 MG  DAY 2  PO
     Route: 048

REACTIONS (5)
  - ERYTHEMA [None]
  - PRURITUS [None]
  - SKIN DISCOLOURATION [None]
  - SKIN HAEMORRHAGE [None]
  - SWOLLEN TONGUE [None]
